FAERS Safety Report 24882266 (Version 1)
Quarter: 2025Q1

REPORT INFORMATION
  Report Type: Spontaneous
  Country: HU (occurrence: HU)
  Receive Date: 20250124
  Receipt Date: 20250124
  Transmission Date: 20250409
  Serious: Yes (Hospitalization, Other)
  Sender: AMGEN
  Company Number: HU-AMGEN-HUNSP2025009044

PATIENT
  Age: 47 Year
  Sex: Female

DRUGS (11)
  1. FILGRASTIM [Suspect]
     Active Substance: FILGRASTIM
     Indication: Haematopoietic stem cell mobilisation
     Route: 065
     Dates: start: 2019
  2. FILGRASTIM [Suspect]
     Active Substance: FILGRASTIM
     Indication: Neutropenia
  3. CARFILZOMIB [Suspect]
     Active Substance: CARFILZOMIB
     Indication: Plasma cell myeloma
     Route: 065
     Dates: start: 20220719
  4. CARFILZOMIB [Suspect]
     Active Substance: CARFILZOMIB
     Dosage: UNK, Q2WK (BIWEEKLY)
     Route: 065
     Dates: start: 20230117
  5. LENALIDOMIDE [Suspect]
     Active Substance: LENALIDOMIDE
     Indication: Product used for unknown indication
     Route: 065
     Dates: start: 20200424
  6. BORTEZOMIB [Concomitant]
     Active Substance: BORTEZOMIB
     Indication: Plasma cell myeloma
     Dates: start: 2019
  7. THALIDOMIDE [Concomitant]
     Active Substance: THALIDOMIDE
     Indication: Plasma cell myeloma
     Dates: start: 2019
  8. DEXAMETHASONE [Concomitant]
     Active Substance: DEXAMETHASONE
     Dates: start: 2019
  9. MELPHALAN [Concomitant]
     Active Substance: MELPHALAN
     Dates: start: 2019
  10. POMALIDOMIDE [Concomitant]
     Active Substance: POMALIDOMIDE
     Dates: start: 202201
  11. BENDAMUSTINE [Concomitant]
     Active Substance: BENDAMUSTINE
     Dates: start: 20220719, end: 20230117

REACTIONS (11)
  - Thrombotic microangiopathy [Unknown]
  - Steroid diabetes [Unknown]
  - Plasma cell myeloma recurrent [Unknown]
  - Neutropenia [Unknown]
  - Rash maculo-papular [Unknown]
  - Respiratory symptom [Unknown]
  - Toxoplasma serology positive [Unknown]
  - Cytomegalovirus test positive [Unknown]
  - Epstein-Barr virus antibody positive [Unknown]
  - Herpes simplex test positive [Unknown]
  - Off label use [Unknown]

NARRATIVE: CASE EVENT DATE: 20220101
